FAERS Safety Report 25044582 (Version 4)
Quarter: 2025Q2

REPORT INFORMATION
  Report Type: Report from Study
  Country: US (occurrence: US)
  Receive Date: 20250306
  Receipt Date: 20250529
  Transmission Date: 20250716
  Serious: Yes (Other)
  Sender: SUNOVION
  Company Number: US-SUMITOMO PHARMA SWITZERLAND GMBH-2025SPA001577

PATIENT

DRUGS (2)
  1. ORGOVYX [Suspect]
     Active Substance: RELUGOLIX
     Indication: Prostate cancer
     Dosage: 120 MG, QD
     Route: 048
     Dates: start: 20241227
  2. NUBEQA [Concomitant]
     Active Substance: DAROLUTAMIDE
     Indication: Prostate cancer
     Dosage: 600 MG, BID
     Route: 065
     Dates: start: 20241227

REACTIONS (8)
  - Surgery [Unknown]
  - Bone disorder [Unknown]
  - Weight decreased [Unknown]
  - Haemoglobin decreased [Recovering/Resolving]
  - Fatigue [Unknown]
  - Asthenia [Unknown]
  - Red blood cell count decreased [Recovering/Resolving]
  - Incorrect dose administered [Unknown]
